FAERS Safety Report 9882305 (Version 2)
Quarter: 2014Q1

REPORT INFORMATION
  Report Type: Spontaneous
  Country: US (occurrence: US)
  Receive Date: 20140207
  Receipt Date: 20140221
  Transmission Date: 20141002
  Serious: Yes (Hospitalization)
  Sender: FDA-Public Use
  Company Number: US-GLAXOSMITHKLINE-A1058686A

PATIENT
  Age: 29 Year
  Sex: Male

DRUGS (2)
  1. ADVAIR [Suspect]
     Indication: CYSTIC FIBROSIS
     Route: 055
  2. ALBUTEROL [Concomitant]
     Route: 055

REACTIONS (2)
  - Central venous catheterisation [Unknown]
  - Infection [Unknown]
